FAERS Safety Report 16349519 (Version 3)
Quarter: 2019Q2

REPORT INFORMATION
  Report Type: Spontaneous
  Country: US (occurrence: US)
  Receive Date: 20190523
  Receipt Date: 20190605
  Transmission Date: 20190711
  Serious: Yes (Hospitalization, Other)
  Sender: FDA-Public Use
  Company Number: US-SUNOVION-2019SUN002122

PATIENT
  Age: 49 Year
  Sex: Female

DRUGS (4)
  1. LATUDA [Suspect]
     Active Substance: LURASIDONE HYDROCHLORIDE
     Indication: PRODUCT USED FOR UNKNOWN INDICATION
     Dosage: 60 MG, HS
     Route: 048
     Dates: end: 20190213
  2. SEROQUEL [Suspect]
     Active Substance: QUETIAPINE FUMARATE
     Dosage: UNK
  3. LATUDA [Suspect]
     Active Substance: LURASIDONE HYDROCHLORIDE
     Dosage: 40 MG, BID
     Route: 048
     Dates: start: 20190213, end: 20190225
  4. BACLOFEN. [Concomitant]
     Active Substance: BACLOFEN

REACTIONS (14)
  - Muscle contractions involuntary [Not Recovered/Not Resolved]
  - Off label use [Unknown]
  - Tardive dyskinesia [Unknown]
  - Weight increased [Unknown]
  - Tremor [Not Recovered/Not Resolved]
  - Suicidal ideation [Unknown]
  - Muscle twitching [Unknown]
  - Anxiety [Not Recovered/Not Resolved]
  - Musculoskeletal disorder [Not Recovered/Not Resolved]
  - Extrapyramidal disorder [Not Recovered/Not Resolved]
  - Tic [Not Recovered/Not Resolved]
  - Seizure [Unknown]
  - Oromandibular dystonia [Unknown]
  - Restlessness [Not Recovered/Not Resolved]

NARRATIVE: CASE EVENT DATE: 201902
